FAERS Safety Report 7556323-0 (Version None)
Quarter: 2011Q2

REPORT INFORMATION
  Report Type: 
  Country: None (occurrence: None)
  Receive Date: 20110620
  Receipt Date: 20110617
  Transmission Date: 20111010
  Serious: No
  Sender: FDA-Public Use
  Company Number: US-PFIZER INC-2011134254

PATIENT

DRUGS (1)
  1. GEODON [Suspect]
     Indication: DELIRIUM
     Dosage: UNK
     Route: 058
     Dates: start: 20110617

REACTIONS (1)
  - DRUG INEFFECTIVE [None]
